FAERS Safety Report 4531201-X (Version None)
Quarter: 2005Q1

REPORT INFORMATION
  Report Type: 
  Country: None (occurrence: None)
  Receive Date: 20041206
  Receipt Date: 20040909
  Transmission Date: 20050727
  Serious: No
  Sender: FDA-Public Use
  Company Number: USA040977115

PATIENT
  Age: 66 Year
  Sex: Female

DRUGS (9)
  1. CYMBALTA [Suspect]
     Indication: FIBROMYALGIA
     Dosage: 60 MG/ 1 DAY
     Dates: start: 20040825
  2. PROZAC [Suspect]
     Indication: ANXIETY
  3. KLONOPIN [Concomitant]
  4. VICODIN [Concomitant]
  5. ESTRACE [Concomitant]
  6. ASPIRIN [Concomitant]
  7. VITAMIN E [Concomitant]
  8. SOY TABLET [Concomitant]
  9. CORTISONE [Concomitant]

REACTIONS (4)
  - ANXIETY [None]
  - DRUG INEFFECTIVE [None]
  - FEELING ABNORMAL [None]
  - NAUSEA [None]
